FAERS Safety Report 25290673 (Version 1)
Quarter: 2025Q2

REPORT INFORMATION
  Report Type: Spontaneous
  Country: GB (occurrence: GB)
  Receive Date: 20250510
  Receipt Date: 20250510
  Transmission Date: 20250716
  Serious: Yes (Disabling, Other)
  Sender: IPSEN BIOPHARMACEUTICALS, INC.
  Company Number: None

PATIENT
  Age: 56 Year
  Sex: Female
  Weight: 63 kg

DRUGS (3)
  1. LANREOTIDE ACETATE [Suspect]
     Active Substance: LANREOTIDE ACETATE
     Indication: Metastatic glucagonoma
     Route: 065
     Dates: start: 20200930
  2. RIVAROXABAN [Concomitant]
     Active Substance: RIVAROXABAN
     Indication: Pulmonary embolism
     Route: 050
     Dates: start: 20210331
  3. GENERICS UK PENICILLIN VK [Concomitant]
     Indication: Pancreaticosplenectomy

REACTIONS (1)
  - Agitation [Not Recovered/Not Resolved]

NARRATIVE: CASE EVENT DATE: 20250505
